FAERS Safety Report 25677480 (Version 1)
Quarter: 2025Q3

REPORT INFORMATION
  Report Type: Spontaneous
  Country: JP (occurrence: JP)
  Receive Date: 20250813
  Receipt Date: 20250813
  Transmission Date: 20251020
  Serious: Yes (Other)
  Sender: ACCORD
  Company Number: JP-MLMSERVICE-20250729-PI595969-00128-1

PATIENT
  Age: 62 Year
  Sex: Female

DRUGS (7)
  1. ETOPOSIDE [Suspect]
     Active Substance: ETOPOSIDE
     Indication: Peripheral T-cell lymphoma unspecified recurrent
  2. RITUXIMAB [Suspect]
     Active Substance: RITUXIMAB
     Indication: Peripheral T-cell lymphoma unspecified recurrent
  3. CYCLOPHOSPHAMIDE [Suspect]
     Active Substance: CYCLOPHOSPHAMIDE
     Indication: Peripheral T-cell lymphoma unspecified recurrent
  4. VINCRISTINE [Suspect]
     Active Substance: VINCRISTINE
     Indication: Peripheral T-cell lymphoma unspecified recurrent
  5. BLEOMYCIN [Suspect]
     Active Substance: BLEOMYCIN SULFATE
     Indication: Peripheral T-cell lymphoma unspecified recurrent
  6. DOXORUBICIN [Suspect]
     Active Substance: DOXORUBICIN
     Indication: Peripheral T-cell lymphoma unspecified recurrent
  7. PREDNISOLONE [Suspect]
     Active Substance: PREDNISOLONE
     Indication: Peripheral T-cell lymphoma unspecified recurrent

REACTIONS (3)
  - Liver injury [Unknown]
  - Condition aggravated [Unknown]
  - Myelosuppression [Unknown]
